FAERS Safety Report 9956371 (Version 1)
Quarter: 2014Q1

REPORT INFORMATION
  Report Type: Spontaneous
  Country: CH (occurrence: CH)
  Receive Date: 20140304
  Receipt Date: 20140304
  Transmission Date: 20141002
  Serious: Yes (Death, Other)
  Sender: FDA-Public Use
  Company Number: PHHY2014CH024693

PATIENT
  Age: 45 Year
  Sex: Male
  Weight: 52 kg

DRUGS (10)
  1. MORPHINE [Suspect]
     Indication: ABDOMINAL PAIN
     Dosage: 0.005 %, UNK
     Route: 008
  2. MORPHINE [Suspect]
     Dosage: 0.01 %, UNK
     Route: 008
  3. MORPHINE [Suspect]
     Indication: ANALGESIC THERAPY
     Route: 048
  4. PARACETAMOL [Suspect]
     Indication: ANALGESIC THERAPY
  5. BUPIVACAINE [Suspect]
     Indication: ABDOMINAL PAIN
     Dosage: 0.25 %, UNK
     Route: 008
  6. BUPIVACAINE [Suspect]
     Dosage: 0.5 %, UNK
     Route: 008
  7. CORTICOSTEROIDS [Suspect]
     Indication: ANALGESIC THERAPY
  8. LIDOCAINE [Concomitant]
     Dosage: 3 ML, UNK
  9. EPINEPHRINE [Concomitant]
  10. SODIUM HYDROXIDE [Concomitant]

REACTIONS (4)
  - Adenocarcinoma gastric [Fatal]
  - Abdominal pain [Unknown]
  - Drug effect incomplete [Unknown]
  - Product deposit [Unknown]
